FAERS Safety Report 9681154 (Version 1)
Quarter: 2013Q4

REPORT INFORMATION
  Report Type: Spontaneous
  Country: US (occurrence: US)
  Receive Date: 20131111
  Receipt Date: 20131111
  Transmission Date: 20140711
  Serious: Yes (Other)
  Sender: FDA-Public Use
  Company Number: US-SA-2013SA115019

PATIENT
  Sex: Female

DRUGS (2)
  1. LANTUS [Suspect]
     Route: 065
  2. VICTOZA [Suspect]
     Route: 065

REACTIONS (10)
  - Weight increased [Unknown]
  - Panic attack [Unknown]
  - Anxiety [Unknown]
  - Depression [Unknown]
  - Sleep disorder [Unknown]
  - Asthenia [Unknown]
  - Feeling abnormal [Unknown]
  - Adverse event [Unknown]
  - Somnolence [Unknown]
  - Blood glucose increased [Unknown]
